FAERS Safety Report 5760983-4 (Version None)
Quarter: 2008Q2

REPORT INFORMATION
  Report Type: 
  Country: None (occurrence: None)
  Receive Date: 20080606
  Receipt Date: 20071009
  Transmission Date: 20081010
  Serious: Yes (Hospitalization)
  Sender: FDA-Public Use
  Company Number: US-ASTRAZENECA-2007UW23541

PATIENT
  Age: 30 Year
  Sex: Female

DRUGS (3)
  1. PRILOSEC [Suspect]
     Route: 048
  2. DESOGESTREL AND ETHINYL ESTRADIOL [Suspect]
     Dosage: 0.15/0.03MG
     Route: 048
     Dates: start: 20070201, end: 20070917
  3. ALLEGRA-D [Concomitant]

REACTIONS (1)
  - ANAPHYLACTIC REACTION [None]
